FAERS Safety Report 16580204 (Version 3)
Quarter: 2020Q1

REPORT INFORMATION
  Report Type: Spontaneous
  Country: GB (occurrence: GB)
  Receive Date: 20190716
  Receipt Date: 20200206
  Transmission Date: 20200409
  Serious: Yes (Other)
  Sender: FDA-Public Use
  Company Number: GB-TEVA-2019-GB-1077412

PATIENT
  Age: 67 Year
  Sex: Male
  Weight: 59 kg

DRUGS (7)
  1. TOPIRAMITE 25MG [Concomitant]
     Indication: PRODUCT USED FOR UNKNOWN INDICATION
     Dosage: MORNING AND NIGHT;
  2. RAMIPRIL 1.25MG CAPSULES, HARD [Suspect]
     Active Substance: RAMIPRIL
     Dosage: 5 MILLIGRAM DAILY; THE INITIAL DOSE WAS 1.25MG DAILY, THEN INCREASED TO 2.5MG DAILY AND RECENTLY WAS
     Route: 048
  3. ASPIRIN 75MG [Concomitant]
     Indication: PRODUCT USED FOR UNKNOWN INDICATION
  4. RAMIPRIL 1.25MG CAPSULES, HARD [Suspect]
     Active Substance: RAMIPRIL
     Indication: HYPERTENSION
     Dosage: 1.25 MILLIGRAM DAILY; THE INITIAL DOSE WAS 1.25MG DAILY, THEN INCREASED TO 2.5MG DAILY AND RECENTLY
     Route: 048
     Dates: start: 20181018
  5. AMLODIPINE [Concomitant]
     Active Substance: AMLODIPINE BESYLATE
     Indication: PRODUCT USED FOR UNKNOWN INDICATION
     Route: 048
  6. RAMIPRIL 1.25MG CAPSULES, HARD [Suspect]
     Active Substance: RAMIPRIL
     Dosage: 2.5 MILLIGRAM DAILY; THE INITIAL DOSE WAS 1.25MG DAILY, THEN INCREASED TO 2.5MG DAILY AND RECENTLY W
     Route: 048
  7. SIMVASTATIN 20MG FILM-COATED TABLETS [Concomitant]
     Active Substance: SIMVASTATIN
     Indication: PRODUCT USED FOR UNKNOWN INDICATION

REACTIONS (1)
  - Aortic aneurysm [Not Recovered/Not Resolved]

NARRATIVE: CASE EVENT DATE: 201901
